FAERS Safety Report 4350917-1 (Version None)
Quarter: 2004Q2

REPORT INFORMATION
  Report Type: 
  Country: None (occurrence: None)
  Receive Date: 20040430
  Receipt Date: 20031029
  Transmission Date: 20050107
  Serious: Yes (Death, Other)
  Sender: FDA-Public Use
  Company Number: US-GLAXOSMITHKLINE-B0313782A

PATIENT
  Age: 51 Year
  Sex: Male

DRUGS (4)
  1. WELLBUTRIN [Suspect]
     Route: 065
  2. ACETAMINOPHEN W/ PROPOXYPHENE HCL [Suspect]
     Route: 048
  3. CARBAMAZEPINE [Suspect]
     Route: 065
  4. ACETAMINOPHEN, ASPIRIN, AND CODEINE PHOSPHATE [Concomitant]
     Route: 065

REACTIONS (4)
  - BLOOD PRESSURE DECREASED [None]
  - COMPLETED SUICIDE [None]
  - DEPRESSED LEVEL OF CONSCIOUSNESS [None]
  - DRUG TOXICITY [None]
